FAERS Safety Report 9245473 (Version 2)
Quarter: 2013Q2

REPORT INFORMATION
  Report Type: Report from Study
  Country: CH (occurrence: CH)
  Receive Date: 20130422
  Receipt Date: 20130430
  Transmission Date: 20140414
  Serious: Yes (Death, Hospitalization, Other)
  Sender: FDA-Public Use
  Company Number: CH-ASTELLAS-2013EU003455

PATIENT
  Age: 71 Year
  Sex: Male
  Weight: 84 kg

DRUGS (3)
  1. ENZALUTAMIDE [Suspect]
     Indication: PROSTATE CANCER
     Dosage: 2 DF, UID/QD
     Route: 048
     Dates: start: 20130312, end: 20130412
  2. AMLODIPIN                          /00972401/ [Concomitant]
     Indication: HYPERTENSION
     Dosage: 7.5 MG, UID/QD
     Route: 048
  3. PREDNISONE [Concomitant]
     Indication: PROSTATE CANCER
     Dosage: 5 MG, UID/QD
     Route: 048
     Dates: start: 201108

REACTIONS (6)
  - Malignant neoplasm progression [Fatal]
  - Pleural effusion [Fatal]
  - Fatigue [Fatal]
  - Ascites [Fatal]
  - Dyspnoea [Fatal]
  - Peritonitis bacterial [Unknown]
